FAERS Safety Report 8535589 (Version 4)
Quarter: 2013Q1

REPORT INFORMATION
  Report Type: Spontaneous
  Country: US (occurrence: None)
  Receive Date: 20120411
  Receipt Date: 20130304
  Transmission Date: 20140127
  Serious: Yes (Hospitalization, Other)
  Sender: FDA-Public Use
  Company Number: 003-072

PATIENT
  Age: 10 Year
  Sex: Male

DRUGS (1)
  1. CROFAB [Suspect]
     Indication: SNAKE BITE
     Dosage: 22 VIALS TOTAL
     Dates: start: 20120314, end: 20120318

REACTIONS (12)
  - Joint range of motion decreased [None]
  - Ecchymosis [None]
  - Oedema peripheral [None]
  - Pulse abnormal [None]
  - Blood creatine phosphokinase increased [None]
  - Compartment syndrome [None]
  - Rash maculo-papular [None]
  - Necrosis [None]
  - Post procedural complication [None]
  - Heart rate increased [None]
  - Blood pressure decreased [None]
  - Tenderness [None]
